FAERS Safety Report 8584669-6 (Version None)
Quarter: 2012Q3

REPORT INFORMATION
  Report Type: 
  Country: None (occurrence: None)
  Receive Date: 20120810
  Receipt Date: 20120801
  Transmission Date: 20120928
  Serious: Yes (Hospitalization)
  Sender: FDA-Public Use
  Company Number: FR-009507513-1208FRA001947

PATIENT

DRUGS (8)
  1. ALLOPURINOL [Concomitant]
  2. ISOSORBIDE MONONITRATE [Suspect]
     Dosage: UNK
     Dates: end: 20120703
  3. FUROSEMIDE [Concomitant]
     Route: 048
  4. EZETIMIBE [Suspect]
     Indication: DYSLIPIDAEMIA
     Dosage: UNK
     Route: 048
     Dates: end: 20120703
  5. METFORMIN HYDROCHLORIDE [Concomitant]
     Route: 048
  6. PRADAXA [Suspect]
     Indication: ATRIAL FIBRILLATION
     Dosage: UNK
     Route: 048
     Dates: start: 20120423, end: 20120703
  7. DIGOXIN [Concomitant]
     Route: 048
  8. SPIRONOLACTONE [Concomitant]
     Route: 048

REACTIONS (1)
  - SUBARACHNOID HAEMORRHAGE [None]
